FAERS Safety Report 11440063 (Version 1)
Quarter: 2015Q3

REPORT INFORMATION
  Report Type: Spontaneous
  Country: US (occurrence: US)
  Receive Date: 20150901
  Receipt Date: 20150901
  Transmission Date: 20151125
  Serious: No
  Sender: FDA-Public Use
  Company Number: US-ROCHE-1109810

PATIENT
  Sex: Female

DRUGS (3)
  1. RIBAVIRIN. [Suspect]
     Active Substance: RIBAVIRIN
     Indication: CHRONIC HEPATITIS C
     Dosage: RIBAVIRIN (SANDOZ)
     Route: 065
     Dates: start: 20120817
  2. PEGASYS [Suspect]
     Active Substance: PEGINTERFERON ALFA-2A
     Indication: CHRONIC HEPATITIS C
     Route: 058
     Dates: start: 20120817
  3. TELAPREVIR [Suspect]
     Active Substance: TELAPREVIR
     Indication: CHRONIC HEPATITIS C
     Route: 065
     Dates: start: 20120817

REACTIONS (8)
  - Fatigue [Unknown]
  - Pain [Unknown]
  - Upper extremity mass [Unknown]
  - Thirst [Unknown]
  - Asthenia [Unknown]
  - Blood potassium decreased [Unknown]
  - Pruritus [Unknown]
  - Back pain [Recovered/Resolved]
